FAERS Safety Report 17532577 (Version 3)
Quarter: 2020Q2

REPORT INFORMATION
  Report Type: Report from Study
  Country: CO (occurrence: CO)
  Receive Date: 20200312
  Receipt Date: 20200511
  Transmission Date: 20200713
  Serious: Yes (Other)
  Sender: FDA-Public Use
  Company Number: CO-JNJFOC-20190401789

PATIENT
  Sex: Female
  Weight: 71 kg

DRUGS (4)
  1. STELARA [Suspect]
     Active Substance: USTEKINUMAB
     Route: 058
     Dates: start: 20180926, end: 201809
  2. STELARA [Suspect]
     Active Substance: USTEKINUMAB
     Indication: PSORIASIS
     Dosage: 45 MG/0.5 ML
     Route: 058
     Dates: start: 20171222, end: 201802
  3. STELARA [Suspect]
     Active Substance: USTEKINUMAB
     Route: 058
     Dates: start: 20190916, end: 20190916
  4. STELARA [Suspect]
     Active Substance: USTEKINUMAB
     Route: 058
     Dates: start: 20190516, end: 20190516

REACTIONS (8)
  - Ovarian cyst [Not Recovered/Not Resolved]
  - Product dose omission [Unknown]
  - Uterine disorder [Unknown]
  - Cataract [Not Recovered/Not Resolved]
  - Dizziness [Recovering/Resolving]
  - Procedural pain [Recovering/Resolving]
  - Psoriasis [Not Recovered/Not Resolved]
  - Blood urine present [Not Recovered/Not Resolved]

NARRATIVE: CASE EVENT DATE: 2018
